FAERS Safety Report 13395046 (Version 2)
Quarter: 2017Q2

REPORT INFORMATION
  Report Type: Spontaneous
  Country: US (occurrence: US)
  Receive Date: 20170403
  Receipt Date: 20170508
  Transmission Date: 20170830
  Serious: No
  Sender: FDA-Public Use
  Company Number: US-ASTRAZENECA-2017SE33540

PATIENT
  Age: 76 Year
  Sex: Female
  Weight: 71.7 kg

DRUGS (21)
  1. LISINOPRIL. [Suspect]
     Active Substance: LISINOPRIL
     Route: 048
  2. FUROSEMIDE. [Concomitant]
     Active Substance: FUROSEMIDE
  3. ASPIRIN. [Concomitant]
     Active Substance: ASPIRIN
  4. ATIVAN [Concomitant]
     Active Substance: LORAZEPAM
  5. LYNPARZA [Suspect]
     Active Substance: OLAPARIB
     Indication: OVARIAN CANCER
     Route: 048
     Dates: start: 20170317
  6. ALEVE [Concomitant]
     Active Substance: NAPROXEN SODIUM
  7. CYMBALTA [Concomitant]
     Active Substance: DULOXETINE HYDROCHLORIDE
  8. LYNPARZA [Suspect]
     Active Substance: OLAPARIB
     Indication: ADVERSE DRUG REACTION
     Route: 048
     Dates: start: 20170317
  9. DECADRON [Concomitant]
     Active Substance: DEXAMETHASONE
  10. PRILOSEC [Concomitant]
     Active Substance: OMEPRAZOLE MAGNESIUM
  11. ZOFRAN [Concomitant]
     Active Substance: ONDANSETRON HYDROCHLORIDE
  12. THERAGRAN [Concomitant]
     Active Substance: VITAMINS
  13. CATAPRES [Concomitant]
     Active Substance: CLONIDINE HYDROCHLORIDE
  14. AVASTIN [Concomitant]
     Active Substance: BEVACIZUMAB
     Indication: OVARIAN CANCER
     Route: 042
     Dates: start: 20161107
  15. NORVASC [Concomitant]
     Active Substance: AMLODIPINE BESYLATE
  16. PHENERGAN [Concomitant]
     Active Substance: PROMETHAZINE HYDROCHLORIDE
  17. MAG-OX [Concomitant]
     Active Substance: MAGNESIUM OXIDE
  18. NEURONTIN [Concomitant]
     Active Substance: GABAPENTIN
  19. METANX [Concomitant]
     Active Substance: LEVOMEFOLATE CALCIUM\METHYLCOBALAMIN\PYRIDOXAL PHOSPHATE ANHYDROUS
  20. HYDRODIURIL [Concomitant]
     Active Substance: HYDROCHLOROTHIAZIDE
  21. VALTREX [Concomitant]
     Active Substance: VALACYCLOVIR HYDROCHLORIDE

REACTIONS (4)
  - Nausea [Unknown]
  - Drug hypersensitivity [Unknown]
  - Vomiting [Unknown]
  - Peripheral swelling [Recovered/Resolved]

NARRATIVE: CASE EVENT DATE: 20170320
